FAERS Safety Report 9115285 (Version 2)
Quarter: 2013Q2

REPORT INFORMATION
  Report Type: Spontaneous
  Country: US (occurrence: US)
  Receive Date: 20130225
  Receipt Date: 20130506
  Transmission Date: 20140414
  Serious: Yes (Other)
  Sender: FDA-Public Use
  Company Number: PHEH2013US004493

PATIENT
  Age: 69 Year
  Sex: Female

DRUGS (4)
  1. EXFORGE HCT [Suspect]
     Indication: BLOOD PRESSURE ABNORMAL
     Dosage: UNK UKN, UNK
     Route: 048
     Dates: start: 20130125, end: 20130221
  2. POTASSIUM CHLORIDE [Concomitant]
  3. ATENOLOL W/HYDROCHLOROTHIAZIDE [Concomitant]
  4. VITAMINS NOS [Concomitant]
     Dosage: UNK UKN, UNK

REACTIONS (7)
  - Diabetes mellitus [Unknown]
  - Neuropathy peripheral [Unknown]
  - Skin ulcer [Unknown]
  - Oedema peripheral [Recovered/Resolved]
  - Rash [Recovered/Resolved]
  - Pruritus [Recovered/Resolved]
  - Blood pressure inadequately controlled [Recovered/Resolved]
